FAERS Safety Report 23137439 (Version 2)
Quarter: 2023Q4

REPORT INFORMATION
  Report Type: Other
  Country: IN (occurrence: None)
  Receive Date: 20231102
  Receipt Date: 20231124
  Transmission Date: 20240110
  Serious: Yes (Hospitalization)
  Sender: FDA-Public Use
  Company Number: IN-ROCHE-3448948

PATIENT
  Age: 71 Year
  Sex: Female

DRUGS (2)
  1. AVASTIN [Suspect]
     Active Substance: BEVACIZUMAB
     Indication: Ovarian cancer metastatic
     Route: 042
     Dates: start: 20230207
  2. AVASTIN [Suspect]
     Active Substance: BEVACIZUMAB
     Route: 042
     Dates: start: 20230217

REACTIONS (3)
  - Surgery [Recovered/Resolved]
  - Carbohydrate antigen 125 increased [Unknown]
  - Vomiting [Unknown]

NARRATIVE: CASE EVENT DATE: 20230911
